FAERS Safety Report 11518733 (Version 1)
Quarter: 2015Q3

REPORT INFORMATION
  Report Type: Spontaneous
  Country: US (occurrence: US)
  Receive Date: 20150917
  Receipt Date: 20150917
  Transmission Date: 20151125
  Serious: No
  Sender: FDA-Public Use
  Company Number: US-BAUSCH-BL-2015-010721

PATIENT
  Sex: Male

DRUGS (1)
  1. ERYTHROMYCIN OPHTHALMIC OINTMENT USP 0.5% [Suspect]
     Active Substance: ERYTHROMYCIN
     Indication: DRY EYE
     Dosage: BOTH EYES
     Route: 047

REACTIONS (4)
  - Abnormal sensation in eye [Recovered/Resolved]
  - Insomnia [Unknown]
  - Drug administration error [Unknown]
  - Intentional product use issue [Not Recovered/Not Resolved]
